FAERS Safety Report 17351503 (Version 1)
Quarter: 2020Q1

REPORT INFORMATION
  Report Type: Spontaneous
  Country: DE (occurrence: DE)
  Receive Date: 20200130
  Receipt Date: 20200130
  Transmission Date: 20200409
  Serious: Yes (Hospitalization, Other)
  Sender: FDA-Public Use
  Company Number: DE-MYLANLABS-2020M1010682

PATIENT
  Age: 17 Year
  Sex: Female
  Weight: 41 kg

DRUGS (2)
  1. SALBUTAMOL [Suspect]
     Active Substance: ALBUTEROL
     Indication: PNEUMONIA
     Dosage: 100 MICROGRAM
     Route: 055
  2. CORTISON [Suspect]
     Active Substance: CORTISONE ACETATE
     Indication: PNEUMONIA
     Dosage: UNK
     Route: 055

REACTIONS (2)
  - Ileus paralytic [Unknown]
  - Constipation [Unknown]

NARRATIVE: CASE EVENT DATE: 20190826
